FAERS Safety Report 6701181-7 (Version None)
Quarter: 2010Q2

REPORT INFORMATION
  Report Type: 
  Country: None (occurrence: None)
  Receive Date: 20100428
  Receipt Date: 20100428
  Transmission Date: 20101027
  Serious: Yes (Other)
  Sender: FDA-Public Use
  Company Number: None

PATIENT
  Sex: Female
  Weight: 63.5036 kg

DRUGS (1)
  1. FENTANYL [Suspect]
     Indication: MIGRAINE
     Dosage: 75 MCG PER HOUR TRANSDERMAL
     Route: 062
     Dates: start: 20100302, end: 20100427

REACTIONS (3)
  - PAIN [None]
  - PRODUCT ADHESION ISSUE [None]
  - PRODUCT SUBSTITUTION ISSUE [None]
